FAERS Safety Report 13255691 (Version 1)
Quarter: 2017Q1

REPORT INFORMATION
  Report Type: Spontaneous
  Country: US (occurrence: US)
  Receive Date: 20170217
  Receipt Date: 20170217
  Transmission Date: 20170428
  Serious: Yes (Death)
  Sender: FDA-Public Use
  Company Number: None

PATIENT
  Age: 67 Year
  Sex: Female

DRUGS (1)
  1. MYCOPHENOLATE 500MG WEST-WARD PHARMACEUTICAL CORP, A SUBSIDIARY OF HIKMA [Suspect]
     Active Substance: MYCOPHENOLATE MOFETIL
     Indication: SYSTEMIC LUPUS ERYTHEMATOSUS
     Route: 048
     Dates: start: 20160707

REACTIONS (2)
  - Septic shock [None]
  - Viral sepsis [None]

NARRATIVE: CASE EVENT DATE: 20170204
